FAERS Safety Report 6912083-5 (Version None)
Quarter: 2010Q3

REPORT INFORMATION
  Report Type: 
  Country: None (occurrence: None)
  Receive Date: 20100806
  Receipt Date: 20071026
  Transmission Date: 20110219
  Serious: No
  Sender: FDA-Public Use
  Company Number: US-PFIZER INC-2007090192

PATIENT
  Age: 15 Year
  Sex: Female

DRUGS (4)
  1. VORICONAZOLE [Suspect]
     Indication: FUNGAL INFECTION
  2. AMPHOTERICIN B [Concomitant]
  3. AMBISOME [Concomitant]
  4. CASPOFUNGIN [Concomitant]

REACTIONS (1)
  - DRUG INEFFECTIVE [None]
